FAERS Safety Report 15346991 (Version 1)
Quarter: 2018Q3

REPORT INFORMATION
  Report Type: Spontaneous
  Country: US (occurrence: US)
  Receive Date: 20180829
  Receipt Date: 20180829
  Transmission Date: 20181010
  Serious: Yes (Hospitalization)
  Sender: FDA-Public Use
  Company Number: None

PATIENT
  Age: 63 Year
  Sex: Male

DRUGS (1)
  1. PAPAVERINE ? PHENTOLAMINE [Suspect]
     Active Substance: PAPAVERINE\PHENTOLAMINE
     Indication: ERECTILE DYSFUNCTION
     Dosage: ?          OTHER FREQUENCY:AS DIRECTED;?
     Route: 017

REACTIONS (2)
  - Penile infection [None]
  - Priapism [None]

NARRATIVE: CASE EVENT DATE: 20180717
